FAERS Safety Report 12479345 (Version 1)
Quarter: 2016Q2

REPORT INFORMATION
  Report Type: Spontaneous
  Country: US (occurrence: US)
  Receive Date: 20160620
  Receipt Date: 20160620
  Transmission Date: 20160815
  Serious: No
  Sender: FDA-Public Use
  Company Number: US-JAZZ-JPI-P-008974

PATIENT
  Sex: Female
  Weight: 56.82 kg

DRUGS (3)
  1. XYREM [Suspect]
     Active Substance: SODIUM OXYBATE
     Indication: CATAPLEXY
     Route: 048
     Dates: start: 20040127
  2. XYREM [Suspect]
     Active Substance: SODIUM OXYBATE
     Indication: NARCOLEPSY
     Dosage: SINGLE (4.5 G TO 5 G TWICE NIGHTLY)
     Route: 048
     Dates: start: 2005
  3. ANAFRANIL [Concomitant]
     Active Substance: CLOMIPRAMINE HYDROCHLORIDE
     Indication: PRODUCT USED FOR UNKNOWN INDICATION

REACTIONS (1)
  - Blood pressure increased [Recovering/Resolving]

NARRATIVE: CASE EVENT DATE: 2008
